FAERS Safety Report 13281344 (Version 1)
Quarter: 2017Q1

REPORT INFORMATION
  Report Type: Spontaneous
  Country: US (occurrence: US)
  Receive Date: 20170301
  Receipt Date: 20170301
  Transmission Date: 20170428
  Serious: No
  Sender: FDA-Public Use
  Company Number: US-INSYS THERAPEUTICS, INC-INS201608-000434

PATIENT
  Sex: Male

DRUGS (3)
  1. METHADONE [Concomitant]
     Active Substance: METHADONE HYDROCHLORIDE
  2. OXYCODONE [Concomitant]
     Active Substance: OXYCODONE
  3. SUBSYS [Suspect]
     Active Substance: FENTANYL
     Indication: BREAKTHROUGH PAIN
     Route: 060

REACTIONS (5)
  - Drug ineffective [Unknown]
  - Asthenia [Not Recovered/Not Resolved]
  - Malaise [Unknown]
  - Product quality issue [Unknown]
  - Treatment noncompliance [Unknown]
